FAERS Safety Report 21572884 (Version 1)
Quarter: 2022Q4

REPORT INFORMATION
  Report Type: Spontaneous
  Country: US (occurrence: US)
  Receive Date: 20221109
  Receipt Date: 20221109
  Transmission Date: 20230113
  Serious: No
  Sender: FDA-Public Use
  Company Number: US-PFIZER INC-202201287398

PATIENT
  Age: 79 Year
  Sex: Male

DRUGS (3)
  1. BOSULIF [Suspect]
     Active Substance: BOSUTINIB MONOHYDRATE
     Dosage: 500 MG, 1X/DAY(TAKE 1 TABLET DAILY WITH BREAKFAST)
     Route: 048
     Dates: start: 20220805
  2. SPRYCEL [Concomitant]
     Active Substance: DASATINIB
     Dosage: UNK
  3. IMATINIB MESYLATE [Concomitant]
     Active Substance: IMATINIB MESYLATE
     Dosage: UNK

REACTIONS (1)
  - Nausea [Not Recovered/Not Resolved]
